FAERS Safety Report 5673925-7 (Version None)
Quarter: 2008Q2

REPORT INFORMATION
  Report Type: 
  Country: None (occurrence: None)
  Receive Date: 20080228
  Receipt Date: 20070517
  Transmission Date: 20081010
  Serious: Yes (Hospitalization)
  Sender: FDA-Public Use
  Company Number: US200705004402

PATIENT
  Age: 31 Year

DRUGS (3)
  1. SYMBYAX [Suspect]
     Indication: BORDERLINE PERSONALITY DISORDER
     Dosage: ORAL
     Route: 048
  2. LAMICTAL [Concomitant]
  3. TRILEPTAL [Concomitant]

REACTIONS (1)
  - SUICIDE ATTEMPT [None]
